FAERS Safety Report 4594610-9 (Version None)
Quarter: 2005Q1

REPORT INFORMATION
  Report Type: 
  Country: None (occurrence: None)
  Receive Date: 20050301
  Receipt Date: 20041102
  Transmission Date: 20050727
  Serious: No
  Sender: FDA-Public Use
  Company Number: US-BRISTOL-MYERS SQUIBB COMPANY-12753927

PATIENT
  Sex: Male

DRUGS (1)
  1. ERBITUX [Suspect]
     Dosage: LOADING DOSE, INFUSION D/C
     Route: 042
     Dates: start: 20041102, end: 20041102

REACTIONS (2)
  - DERMATITIS ACNEIFORM [None]
  - INFUSION RELATED REACTION [None]
